FAERS Safety Report 22643979 (Version 4)
Quarter: 2023Q4

REPORT INFORMATION
  Report Type: Spontaneous
  Country: CA (occurrence: CA)
  Receive Date: 20230627
  Receipt Date: 20231030
  Transmission Date: 20240110
  Serious: No
  Sender: FDA-Public Use
  Company Number: CA-PFIZER INC-202201256266

PATIENT
  Age: 15 Year
  Sex: Female

DRUGS (11)
  1. ABRILADA [Suspect]
     Active Substance: ADALIMUMAB-AFZB
     Indication: Uveitis
     Dosage: 40 MG EVERY 2 WEEKS, PREFILLED PEN/SYRINGE NOT INDICATED - PATIENT CHOSE PEN
     Route: 058
     Dates: start: 20221022
  2. ABRILADA [Suspect]
     Active Substance: ADALIMUMAB-AFZB
     Dosage: 40 MG EVERY 2 WEEKS, PREFILLED PEN/SYRINGE NOT INDICATED - PATIENT CHOSE PEN
     Route: 058
  3. ABRILADA [Suspect]
     Active Substance: ADALIMUMAB-AFZB
     Dosage: 40 MG EVERY 2 WEEKS, PREFILLED PEN/SYRINGE NOT INDICATED - PATIENT CHOSE PEN
     Route: 058
     Dates: start: 202304, end: 2023
  4. IRON [Concomitant]
     Active Substance: IRON
     Dosage: 1 DF - DOSAGE UNKNOWN (IRON SUPPLEMENTS)
     Route: 065
  5. LATANOPROST / TIMOLOL [Concomitant]
     Dosage: 1 DF - DOSAGE UNKNOWN (EYE DROPS)
     Route: 065
  6. METHOTREXATE SODIUM [Concomitant]
     Active Substance: METHOTREXATE SODIUM
     Dosage: 25 MG, WEEKLY X 1 YEAR
     Route: 058
  7. PREDNISONE [Concomitant]
     Active Substance: PREDNISONE
     Dosage: 1 DF - DOSAGE UNKNOWN (EYE DROPS)
     Route: 065
  8. TIMOLOL [Concomitant]
     Active Substance: TIMOLOL
     Dosage: 1 DF - DOSAGE UNKNOWN (EYE DROPS)
     Route: 065
  9. VITAMIN C [Concomitant]
     Active Substance: ASCORBIC ACID
     Dosage: 1 DF - DOSAGE UNKNOWN (VITAMIN D +C SUPPLEMENTS)
     Route: 065
  10. CHOLECALCIFEROL [Concomitant]
     Active Substance: CHOLECALCIFEROL
     Dosage: 1 DF - DOSAGE UNKNOWN (VITAMIN D +C SUPPLEMENTS)
     Route: 065
  11. ZOFRAN [Concomitant]
     Active Substance: ONDANSETRON HYDROCHLORIDE
     Dosage: 1 DF (1 TAB PRIOR TO MTX INJECTION)
     Route: 065

REACTIONS (9)
  - Tooth infection [Unknown]
  - Headache [Not Recovered/Not Resolved]
  - Abdominal pain upper [Unknown]
  - Injection site pain [Unknown]
  - Illness [Unknown]
  - Anxiety [Unknown]
  - Pain [Unknown]
  - Burning sensation [Unknown]
  - Incorrect product formulation administered [Unknown]

NARRATIVE: CASE EVENT DATE: 20221022
